FAERS Safety Report 24601131 (Version 1)
Quarter: 2024Q4

REPORT INFORMATION
  Report Type: Spontaneous
  Country: CN (occurrence: CN)
  Receive Date: 20241110
  Receipt Date: 20241110
  Transmission Date: 20250115
  Serious: Yes (Hospitalization)
  Sender: Haleon PLC
  Company Number: CN-HALEON-2206569

PATIENT
  Age: 45 Year
  Sex: Female
  Weight: 54 kg

DRUGS (2)
  1. IBUPROFEN [Suspect]
     Active Substance: IBUPROFEN
     Indication: Pyrexia
     Dosage: TIME INTERVAL: 0.33333333 DAYS
     Route: 048
     Dates: start: 20240825, end: 20240825
  2. MOMETASONE FUROATE [Suspect]
     Active Substance: MOMETASONE FUROATE
     Indication: Product used for unknown indication
     Route: 061

REACTIONS (15)
  - Drug eruption [Recovering/Resolving]
  - Dizziness [Unknown]
  - Abdominal distension [Unknown]
  - Headache [Unknown]
  - Decreased appetite [Unknown]
  - Swelling face [Unknown]
  - Rash [Recovering/Resolving]
  - Pruritus [Recovered/Resolved]
  - Face oedema [Unknown]
  - Pyrexia [Recovered/Resolved]
  - Erythema [Unknown]
  - Swelling face [Unknown]
  - Yellow skin [Unknown]
  - Drug ineffective [Unknown]
  - Scleral disorder [Unknown]

NARRATIVE: CASE EVENT DATE: 20240825
